FAERS Safety Report 7746503-3 (Version None)
Quarter: 2011Q3

REPORT INFORMATION
  Report Type: 
  Country: None (occurrence: None)
  Receive Date: 20110907
  Receipt Date: 20110808
  Transmission Date: 20111222
  Serious: Yes (Hospitalization)
  Sender: FDA-Public Use
  Company Number: THQ2011A05366

PATIENT
  Age: 84 Year
  Sex: Male

DRUGS (10)
  1. BISOPROLOL FUMARATE [Concomitant]
  2. DIGOXIN [Concomitant]
  3. BENDOFLUMETHIAZIDE [Concomitant]
  4. ACETAMINOPHEN [Concomitant]
  5. SIMVASTATIN [Concomitant]
  6. TOLTERODINE TARTRATE [Concomitant]
  7. TRAMADOL HCL [Concomitant]
  8. LISINOPRIL [Concomitant]
  9. LANSOPRAZOLE [Suspect]
     Indication: PRODUCT USED FOR UNKNOWN INDICATION
     Dosage: 30 MG (30 MG, 1 IN 1 D)
     Dates: start: 20110801, end: 20110809
  10. WARFARIN SODIUM [Concomitant]

REACTIONS (3)
  - JAUNDICE [None]
  - LIVER INJURY [None]
  - DIABETES MELLITUS [None]
